FAERS Safety Report 9724943 (Version 3)
Quarter: 2014Q1

REPORT INFORMATION
  Report Type: Spontaneous
  Country: US (occurrence: US)
  Receive Date: 20131202
  Receipt Date: 20140106
  Transmission Date: 20141002
  Serious: Yes (Other)
  Sender: FDA-Public Use
  Company Number: US-BAXTER-2013BAX046902

PATIENT
  Sex: Female

DRUGS (1)
  1. ARTISS [Suspect]
     Indication: SURGERY
     Route: 061
     Dates: start: 20131121, end: 20131121

REACTIONS (4)
  - Drug ineffective [Unknown]
  - Product physical issue [Unknown]
  - Graft complication [Unknown]
  - Wrong technique in drug usage process [Unknown]
